FAERS Safety Report 10336792 (Version 2)
Quarter: 2014Q3

REPORT INFORMATION
  Report Type: Spontaneous
  Country: US (occurrence: US)
  Receive Date: 20140723
  Receipt Date: 20140723
  Transmission Date: 20150326
  Serious: No
  Sender: FDA-Public Use
  Company Number: US-GALDERMA-US13001678

PATIENT
  Age: 63 Year
  Sex: Female
  Weight: 54 kg

DRUGS (5)
  1. OVER-THE COUNTER ZINC GLUCONATE, COPPER GLUCONATE, FOLIC ACID [Concomitant]
     Route: 048
     Dates: start: 201212
  2. ORACEA [Suspect]
     Active Substance: DOXYCYCLINE
     Indication: ROSACEA
     Route: 048
     Dates: start: 2006
  3. NICOTINAMIDE USP 750MG, ZINC OXIDE USP 25MG, CUPRIC OXIDE 1.5MG, FOLIC [Concomitant]
     Route: 048
     Dates: end: 201212
  4. NIACINAMIDE 500 [Suspect]
     Active Substance: NIACINAMIDE
     Route: 048
     Dates: start: 201212
  5. REFRESH TEARS [Concomitant]
     Active Substance: CARBOXYMETHYLCELLULOSE SODIUM
     Indication: DRY EYE
     Route: 047

REACTIONS (3)
  - Rosacea [Recovered/Resolved]
  - Dry eye [Unknown]
  - Glossitis [Not Recovered/Not Resolved]

NARRATIVE: CASE EVENT DATE: 2006
